FAERS Safety Report 22306991 (Version 1)
Quarter: 2023Q2

REPORT INFORMATION
  Report Type: Spontaneous
  Country: US (occurrence: None)
  Receive Date: 20230511
  Receipt Date: 20230511
  Transmission Date: 20230722
  Serious: No
  Sender: FDA-Public Use
  Company Number: US-ROCHE-3074988

PATIENT
  Age: 43 Year
  Sex: Male
  Weight: 99.880 kg

DRUGS (5)
  1. OCREVUS [Suspect]
     Active Substance: OCRELIZUMAB
     Indication: Multiple sclerosis
     Route: 042
     Dates: start: 20220401, end: 20220415
  2. DIPHENHYDRAMINE [Concomitant]
     Active Substance: DIPHENHYDRAMINE
     Dosage: ADMINISTER 25MG BY SLOW PUSH IV OVER SEVERAL MINUTES PRIOR TO INFUSION
     Route: 042
  3. ONDANSETRON HYDROCHLORIDE [Concomitant]
     Active Substance: ONDANSETRON HYDROCHLORIDE
     Dosage: ADMINISTER 4MG BY SLOW PLUSH IV OVER SEVERAL MINUTES PRIOR TO INFUSION
     Route: 042
  4. ACETAMINOPHEN [Concomitant]
     Active Substance: ACETAMINOPHEN
     Dosage: TAKE 2 TABLETS BY MOUTH PRIOR TO INFUSION + EVERY 4 HOURS AS NEEDED
     Route: 048
  5. BENADRYL [Concomitant]
     Active Substance: DIPHENHYDRAMINE HYDROCHLORIDE
     Route: 042

REACTIONS (1)
  - Throat irritation [Recovered/Resolved]

NARRATIVE: CASE EVENT DATE: 20220401
